FAERS Safety Report 17027734 (Version 2)
Quarter: 2019Q4

REPORT INFORMATION
  Report Type: Spontaneous
  Country: MY (occurrence: MY)
  Receive Date: 20191113
  Receipt Date: 20191223
  Transmission Date: 20200122
  Serious: Yes (Other)
  Sender: FDA-Public Use
  Company Number: MY-REGENERON PHARMACEUTICALS, INC.-2019-65947

PATIENT

DRUGS (1)
  1. EYLEA [Suspect]
     Active Substance: AFLIBERCEPT
     Indication: DIABETIC RETINAL OEDEMA
     Dosage: SOLUTION FOR INJECTION;DME WITH RATHER GOOD VISION- FIXED DOSING(18 MON)-STOP-RECUR-INJECT AGAIN-FOV

REACTIONS (2)
  - Visual impairment [Unknown]
  - Macular degeneration [Unknown]
